FAERS Safety Report 21887195 (Version 1)
Quarter: 2023Q1

REPORT INFORMATION
  Report Type: Spontaneous
  Country: US (occurrence: US)
  Receive Date: 20230119
  Receipt Date: 20230119
  Transmission Date: 20230417
  Serious: Yes (Other)
  Sender: FDA-Public Use
  Company Number: US-ABBVIE-4275528

PATIENT
  Sex: Female

DRUGS (1)
  1. HUMIRA [Suspect]
     Active Substance: ADALIMUMAB
     Indication: Product used for unknown indication
     Route: 058

REACTIONS (25)
  - Systemic lupus erythematosus [Unknown]
  - Sciatica [Unknown]
  - Lyme disease [Unknown]
  - Reflexes abnormal [Unknown]
  - Muscle spasms [Unknown]
  - Fatigue [Unknown]
  - Liver function test abnormal [Unknown]
  - Insomnia [Unknown]
  - Polymyalgia rheumatica [Unknown]
  - Abdominal pain [Unknown]
  - Rheumatoid arthritis [Unknown]
  - Sensory loss [Unknown]
  - Synovitis [Unknown]
  - Osteoporosis [Unknown]
  - Finger deformity [Unknown]
  - Rotator cuff syndrome [Unknown]
  - Therapeutic product effect decreased [Unknown]
  - Hydronephrosis [Unknown]
  - Hypertonia [Unknown]
  - Pulmonary tuberculosis [Unknown]
  - Dysuria [Unknown]
  - Depression [Unknown]
  - Vitamin D deficiency [Unknown]
  - Non-alcoholic fatty liver [Unknown]
  - Psoriasis [Unknown]
